FAERS Safety Report 5247753-0 (Version None)
Quarter: 2007Q1

REPORT INFORMATION
  Report Type: 
  Country: None (occurrence: None)
  Receive Date: 20070227
  Receipt Date: 20070212
  Transmission Date: 20070707
  Serious: Yes (Other)
  Sender: FDA-Public Use
  Company Number: US-KINGPHARMUSA00001-K200700176

PATIENT

DRUGS (1)
  1. THROMBIN-JMI [Suspect]
     Route: 042

REACTIONS (3)
  - CONVULSION [None]
  - INCORRECT ROUTE OF DRUG ADMINISTRATION [None]
  - UNRESPONSIVE TO STIMULI [None]
